FAERS Safety Report 9856654 (Version 4)
Quarter: 2014Q1

REPORT INFORMATION
  Report Type: Spontaneous
  Country: FR (occurrence: FR)
  Receive Date: 20140130
  Receipt Date: 20140310
  Transmission Date: 20141002
  Serious: Yes (Other)
  Sender: FDA-Public Use
  Company Number: FR-B.I. PHARMACEUTICALS,INC./RIDGEFIELD-2014-BI-03413FF

PATIENT
  Age: 53 Year
  Sex: Male

DRUGS (2)
  1. VIRAMUNE [Suspect]
     Indication: HIV INFECTION
     Dosage: 400 MG
     Route: 065
     Dates: start: 20130524, end: 20140123
  2. TRUVADA [Concomitant]
     Route: 065

REACTIONS (2)
  - Medication residue present [Not Recovered/Not Resolved]
  - Product quality issue [Not Recovered/Not Resolved]
